FAERS Safety Report 10189516 (Version 1)
Quarter: 2014Q2

REPORT INFORMATION
  Report Type: Spontaneous
  Country: ID (occurrence: ID)
  Receive Date: 20140522
  Receipt Date: 20140522
  Transmission Date: 20141212
  Serious: Yes (Other)
  Sender: FDA-Public Use
  Company Number: PHHY2014ID059962

PATIENT
  Sex: 0

DRUGS (1)
  1. NEORAL ORAL SOLUTION [Suspect]
     Indication: RHEUMATOID ARTHRITIS
     Dosage: UNK

REACTIONS (1)
  - Stevens-Johnson syndrome [Recovering/Resolving]
